FAERS Safety Report 24200648 (Version 1)
Quarter: 2024Q3

REPORT INFORMATION
  Report Type: Spontaneous
  Country: US (occurrence: US)
  Receive Date: 20240812
  Receipt Date: 20240812
  Transmission Date: 20241016
  Serious: No
  Sender: ANI
  Company Number: US-ANIPHARMA-2024-US-040483

PATIENT
  Sex: Male

DRUGS (2)
  1. CORTICOTROPIN [Suspect]
     Active Substance: CORTICOTROPIN
     Indication: Optic neuropathy
     Dosage: 80 UNITS DAILY
     Route: 058
  2. TYLENOL PM EXTRA STRENGTH [Concomitant]
     Active Substance: ACETAMINOPHEN\DIPHENHYDRAMINE HYDROCHLORIDE

REACTIONS (1)
  - Insomnia [Unknown]
